FAERS Safety Report 6910497-0 (Version None)
Quarter: 2010Q3

REPORT INFORMATION
  Report Type: 
  Country: None (occurrence: None)
  Receive Date: 20100806
  Receipt Date: 20100725
  Transmission Date: 20110219
  Serious: Yes (Other)
  Sender: FDA-Public Use
  Company Number: PHHY2010AU38908

PATIENT
  Sex: Female
  Weight: 72 kg

DRUGS (30)
  1. ACLASTA [Suspect]
     Indication: OSTEOPOROSIS
     Dosage: 5MG/100ML
     Dates: start: 20100520
  2. ARISTOCORT [Concomitant]
     Dosage: 0.02 %, UNK
  3. AUGMENTIN DUO FORTE [Concomitant]
     Dosage: 875MG/125MG
  4. IBRUPROFEN [Concomitant]
     Dosage: 400 MG,
  5. CALTRATE [Concomitant]
     Dosage: 600 MG, UNK
  6. ASPIRIN [Concomitant]
  7. DECA-DURABOLIN [Concomitant]
  8. DEPO-MEDROL [Concomitant]
     Dosage: 40 MG, UNK
  9. DIAFORMIN [Concomitant]
     Dosage: 1000 TABLETS
  10. DIPROSONE [Concomitant]
     Dosage: 15 G, UNK
  11. GLADWRAP [Concomitant]
  12. DITROPAN [Concomitant]
     Dosage: 5 MG, UNK
  13. FOLIC ACID [Concomitant]
  14. HYDROZOLE [Concomitant]
     Dosage: 1 %, UNK
  15. ISOPTIN [Concomitant]
     Dosage: 240 MG, QD
  16. KARVEZIDE [Concomitant]
     Dosage: 300/12.5
  17. LIPEX [Concomitant]
     Dosage: 20 MG, QD
  18. MIXTARD HUMAN 70/30 [Concomitant]
     Dosage: 3 ML, UNK
  19. NEMDYN [Concomitant]
  20. NEO-B12 [Concomitant]
  21. NEXIUM [Concomitant]
     Dosage: 20 MG, QD
  22. PANADOL [Concomitant]
     Dosage: 665 MG, UNK
  23. PRECISION PLUS [Concomitant]
  24. PRESSIN [Concomitant]
     Dosage: 2 MG, UNK
  25. QUININE BISULFATE [Concomitant]
     Dosage: 300 MG, UNK
  26. SOFRADEX [Concomitant]
  27. STEMETIL [Concomitant]
     Dosage: 5 MG, UNK
  28. VITAMIN D [Concomitant]
     Dosage: 50000 UNK, UNK
  29. ZANTAC [Concomitant]
     Dosage: 150 MG, UNK
  30. ZYLOPRIM [Concomitant]
     Dosage: 300 MG, QD

REACTIONS (14)
  - BLOOD CREATININE INCREASED [None]
  - BLOOD GLUCOSE FLUCTUATION [None]
  - BLOOD POTASSIUM INCREASED [None]
  - BLOOD PRESSURE FLUCTUATION [None]
  - BLOOD UREA INCREASED [None]
  - C-REACTIVE PROTEIN INCREASED [None]
  - DECREASED APPETITE [None]
  - FATIGUE [None]
  - HEADACHE [None]
  - INFLUENZA LIKE ILLNESS [None]
  - MYALGIA [None]
  - PYREXIA [None]
  - RASH ERYTHEMATOUS [None]
  - TREMOR [None]
